FAERS Safety Report 4453686-X (Version None)
Quarter: 2004Q3

REPORT INFORMATION
  Report Type: 
  Country: None (occurrence: None)
  Receive Date: 20040920
  Receipt Date: 20040906
  Transmission Date: 20050211
  Serious: Yes (Hospitalization)
  Sender: FDA-Public Use
  Company Number: HQWYE844607SEP04

PATIENT
  Sex: Female
  Weight: 96 kg

DRUGS (6)
  1. ENBREL [Suspect]
     Indication: RHEUMATOID ARTHRITIS
     Route: 058
  2. DICLOFENAC [Concomitant]
  3. DEFLAZACORT [Concomitant]
     Dosage: UNKNOWN DOSE AND FREQUENCY
  4. METHOTREXATE [Concomitant]
  5. FOLIC ACID [Concomitant]
     Dosage: UNKNOWN DOSE AND FREQUENCY
  6. ISONIAZID [Concomitant]
     Dosage: UNKNOWN DOSE AND FREQUENCY

REACTIONS (5)
  - BRONCHOSPASM [None]
  - CELLULITIS [None]
  - HERPES ZOSTER [None]
  - RECTAL ABSCESS [None]
  - SUBCUTANEOUS ABSCESS [None]
